FAERS Safety Report 18497879 (Version 3)
Quarter: 2021Q1

REPORT INFORMATION
  Report Type: Report from Study
  Country: None (occurrence: US)
  Receive Date: 20201112
  Receipt Date: 20210118
  Transmission Date: 20210419
  Serious: Yes (Hospitalization)
  Sender: FDA-Public Use
  Company Number: US-ABBVIE-20K-163-3645018-00

PATIENT
  Age: 67 Year
  Sex: Female
  Weight: 53.57 kg

DRUGS (1)
  1. CREON [Suspect]
     Active Substance: PANCRELIPASE AMYLASE\PANCRELIPASE LIPASE\PANCRELIPASE PROTEASE
     Indication: PANCREATIC FAILURE
     Dosage: 5 CAPSULES PER MEALS AND 4 CAPSULES PER SNACK
     Route: 048
     Dates: start: 2017

REACTIONS (8)
  - Ulcer [Not Recovered/Not Resolved]
  - Body temperature abnormal [Recovered/Resolved]
  - Pyrexia [Recovered/Resolved]
  - Discomfort [Recovering/Resolving]
  - Pain [Recovering/Resolving]
  - White blood cell count increased [Recovered/Resolved]
  - Chills [Recovered/Resolved]
  - Hypertension [Recovering/Resolving]

NARRATIVE: CASE EVENT DATE: 2020
